FAERS Safety Report 8965985 (Version 1)
Quarter: 2012Q4

REPORT INFORMATION
  Report Type: 
  Country: US (occurrence: US)
  Receive Date: 20121214
  Receipt Date: 20121214
  Transmission Date: 20130627
  Serious: Yes (Other)
  Sender: FDA-Public Use
  Company Number: CHPA2012US025170

PATIENT
  Age: 74 Year
  Sex: Female

DRUGS (2)
  1. BENEFIBER PLUS CALCIUM WITH WHEAT DEXTRIN [Suspect]
     Indication: DIVERTICULITIS
     Dosage: UNK, UNK
     Route: 048
  2. TOPROL [Concomitant]
     Indication: HYPERTENSION
     Dosage: UNK, UNK

REACTIONS (3)
  - Myocardial infarction [Unknown]
  - Large intestine polyp [Unknown]
  - Off label use [Unknown]
